FAERS Safety Report 6325234-0 (Version None)
Quarter: 2009Q3

REPORT INFORMATION
  Report Type: 
  Country: None (occurrence: None)
  Receive Date: 20090824
  Receipt Date: 20090626
  Transmission Date: 20100115
  Serious: No
  Sender: FDA-Public Use
  Company Number: US-ABBOTT-09P-163-0582352-00

PATIENT
  Sex: Female
  Weight: 81.72 kg

DRUGS (8)
  1. NIASPAN [Suspect]
     Indication: BLOOD TRIGLYCERIDES INCREASED
     Dosage: AT BEDTIME
     Dates: start: 20090515, end: 20090525
  2. NIASPAN [Suspect]
     Indication: LOW DENSITY LIPOPROTEIN INCREASED
  3. NIASPAN [Suspect]
     Indication: HIGH DENSITY LIPOPROTEIN DECREASED
  4. NIASPAN [Suspect]
     Indication: BLOOD CHOLESTEROL INCREASED
  5. PRILOSEC [Concomitant]
     Indication: DRUG USE FOR UNKNOWN INDICATION
  6. CALCIUM + VITAMIN D [Concomitant]
     Indication: DRUG USE FOR UNKNOWN INDICATION
  7. MAGNESIUM AND ZINC [Concomitant]
     Indication: DRUG USE FOR UNKNOWN INDICATION
  8. IBUPROFEN [Concomitant]
     Indication: DRUG USE FOR UNKNOWN INDICATION

REACTIONS (1)
  - FLUSHING [None]
